FAERS Safety Report 23733274 (Version 3)
Quarter: 2024Q2

REPORT INFORMATION
  Report Type: Spontaneous
  Country: CO (occurrence: CO)
  Receive Date: 20240411
  Receipt Date: 20240520
  Transmission Date: 20240715
  Serious: Yes (Disabling, Other)
  Sender: FDA-Public Use
  Company Number: CO-BIOMARINAP-CO-2024-157121

PATIENT

DRUGS (1)
  1. VIMIZIM [Suspect]
     Active Substance: ELOSULFASE ALFA
     Indication: Mucopolysaccharidosis IV
     Dosage: 54 MILLIGRAM, QW
     Route: 042
     Dates: start: 20150605

REACTIONS (5)
  - Bursitis [Unknown]
  - Plica syndrome [Unknown]
  - Arthralgia [Unknown]
  - Limb discomfort [Unknown]
  - Osteoarthritis [Unknown]

NARRATIVE: CASE EVENT DATE: 20170801
